FAERS Safety Report 7252298 (Version 6)
Quarter: 2013Q4

REPORT INFORMATION
  Report Type: Spontaneous
  Country: US (occurrence: US)
  Receive Date: 20100122
  Receipt Date: 20131018
  Transmission Date: 20140711
  Serious: Yes (Hospitalization, Disabling, Other)
  Sender: FDA-Public Use
  Company Number: US-ASTRAZENECA-2010SE01514

PATIENT
  Age: 51 Year
  Sex: Female
  Weight: 72.6 kg

DRUGS (10)
  1. SEROQUEL [Suspect]
     Indication: BIPOLAR I DISORDER
     Route: 048
     Dates: start: 2009, end: 200906
  2. SEROQUEL [Suspect]
     Indication: MENTAL DISORDER
     Route: 048
     Dates: start: 2009, end: 200906
  3. SEROQUEL [Suspect]
     Indication: ANXIETY
     Route: 048
     Dates: start: 2009, end: 200906
  4. SEROQUEL [Suspect]
     Indication: BIPOLAR I DISORDER
     Route: 048
  5. SEROQUEL [Suspect]
     Indication: MENTAL DISORDER
     Route: 048
  6. SEROQUEL [Suspect]
     Indication: ANXIETY
     Route: 048
  7. RISPERDEL [Concomitant]
  8. CELEXA [Concomitant]
     Indication: DEPRESSION
     Dosage: DAILY
     Route: 048
  9. GEODON [Concomitant]
     Indication: BIPOLAR DISORDER
     Route: 048
  10. MELATONIN [Concomitant]
     Indication: INSOMNIA
     Dosage: PRN
     Route: 048

REACTIONS (28)
  - Suicidal ideation [Unknown]
  - Paralysis [Unknown]
  - Cataract [Unknown]
  - Rib fracture [Not Recovered/Not Resolved]
  - Glaucoma [Unknown]
  - Blindness [Recovering/Resolving]
  - Cardiac disorder [Unknown]
  - Fall [Unknown]
  - Gait disturbance [Unknown]
  - Contusion [Unknown]
  - Traumatic lung injury [Unknown]
  - Muscle contusion [Unknown]
  - Injury [Unknown]
  - Gingival pain [Not Recovered/Not Resolved]
  - Weight decreased [Not Recovered/Not Resolved]
  - Aphagia [Not Recovered/Not Resolved]
  - Tooth loss [Unknown]
  - Intentional drug misuse [Unknown]
  - Pain [Unknown]
  - Choking [Unknown]
  - Abasia [Unknown]
  - Memory impairment [Unknown]
  - Back pain [Unknown]
  - Adverse event [Unknown]
  - Weight increased [Unknown]
  - Asthenia [Unknown]
  - Dry mouth [Unknown]
  - Drug dose omission [Unknown]
